FAERS Safety Report 13154202 (Version 1)
Quarter: 2017Q1

REPORT INFORMATION
  Report Type: Spontaneous
  Country: FR (occurrence: FR)
  Receive Date: 20170126
  Receipt Date: 20170126
  Transmission Date: 20170428
  Serious: Yes (Death, Other)
  Sender: FDA-Public Use
  Company Number: FR-PFIZER INC-2016596845

PATIENT
  Age: 93 Year
  Sex: Male

DRUGS (1)
  1. CORDARONE [Suspect]
     Active Substance: AMIODARONE HYDROCHLORIDE
     Indication: CARDIAC FAILURE
     Dosage: UNK
     Route: 065

REACTIONS (4)
  - Polyneuropathy [Unknown]
  - Death [Fatal]
  - Myalgia [Unknown]
  - Gait disturbance [Unknown]
